FAERS Safety Report 13962046 (Version 3)
Quarter: 2017Q4

REPORT INFORMATION
  Report Type: Spontaneous
  Country: US (occurrence: US)
  Receive Date: 20170912
  Receipt Date: 20171221
  Transmission Date: 20180320
  Serious: No
  Sender: FDA-Public Use
  Company Number: US-ACTELION-A-NJ2017-159292

PATIENT
  Age: 63 Year
  Sex: Female

DRUGS (1)
  1. VALCHLOR [Suspect]
     Active Substance: MECHLORETHAMINE
     Indication: MYCOSIS FUNGOIDES
     Dosage: EVERY OTHER DAY
     Route: 061
     Dates: start: 20170824

REACTIONS (5)
  - Endodontic procedure [Unknown]
  - Feeling abnormal [Unknown]
  - Musculoskeletal stiffness [Unknown]
  - Application site irritation [Unknown]
  - Thinking abnormal [Unknown]
